FAERS Safety Report 20022908 (Version 1)
Quarter: 2021Q4

REPORT INFORMATION
  Report Type: Spontaneous
  Country: US (occurrence: US)
  Receive Date: 20211102
  Receipt Date: 20211102
  Transmission Date: 20220303
  Serious: No
  Sender: FDA-Public Use
  Company Number: US-SA-SAC20211026000863

PATIENT
  Age: 17 Year
  Sex: Female

DRUGS (1)
  1. DUPIXENT [Suspect]
     Active Substance: DUPILUMAB
     Indication: Asthma
     Dosage: 300 MG
     Route: 058
     Dates: start: 20210730

REACTIONS (10)
  - Eczema [Unknown]
  - Headache [Unknown]
  - Muscle spasms [Unknown]
  - Breast pain [Unknown]
  - Heavy menstrual bleeding [Unknown]
  - Dizziness [Unknown]
  - Back pain [Unknown]
  - Menstruation irregular [Unknown]
  - Menstrual disorder [Unknown]
  - Drug ineffective [Unknown]

NARRATIVE: CASE EVENT DATE: 20211011
